FAERS Safety Report 7622660-4 (Version None)
Quarter: 2011Q3

REPORT INFORMATION
  Report Type: 
  Country: None (occurrence: None)
  Receive Date: 20110719
  Receipt Date: 20110719
  Transmission Date: 20111222
  Serious: No
  Sender: FDA-Public Use
  Company Number: None

PATIENT
  Sex: Male

DRUGS (1)
  1. LAMOTRIGINE [Suspect]
     Dosage: 1000 1 AM 4 Q PM

REACTIONS (4)
  - OBSESSIVE-COMPULSIVE DISORDER [None]
  - CONDITION AGGRAVATED [None]
  - PANIC ATTACK [None]
  - DEPRESSION [None]
